FAERS Safety Report 4454571-X (Version None)
Quarter: 2004Q3

REPORT INFORMATION
  Report Type: 
  Country: None (occurrence: None)
  Receive Date: 20040920
  Receipt Date: 20040920
  Transmission Date: 20050211
  Serious: No
  Sender: FDA-Public Use
  Company Number: None

PATIENT
  Age: 36 Year
  Sex: Male
  Weight: 82.1011 kg

DRUGS (1)
  1. LARIAM [Suspect]
     Indication: MALARIA PROPHYLAXIS
     Dosage: 1 TABLET PER WEEK FOR 7 WEEKS

REACTIONS (15)
  - ALANINE AMINOTRANSFERASE INCREASED [None]
  - ANXIETY [None]
  - BALANCE DISORDER [None]
  - CHILLS [None]
  - DEPRESSION [None]
  - DISTURBANCE IN ATTENTION [None]
  - FATIGUE [None]
  - FEELING HOT AND COLD [None]
  - HEADACHE [None]
  - HEART RATE IRREGULAR [None]
  - HYPERHIDROSIS [None]
  - INSOMNIA [None]
  - PANIC REACTION [None]
  - PARAESTHESIA [None]
  - PARANOIA [None]
